FAERS Safety Report 6169484-5 (Version None)
Quarter: 2009Q2

REPORT INFORMATION
  Report Type: 
  Country: None (occurrence: None)
  Receive Date: 20090428
  Receipt Date: 20090421
  Transmission Date: 20091009
  Serious: Yes (Hospitalization, Other)
  Sender: FDA-Public Use
  Company Number: GB-JNJFOC-20090405285

PATIENT
  Sex: Female

DRUGS (1)
  1. LEUSTAT [Suspect]
     Indication: HAIRY CELL LEUKAEMIA
     Route: 065

REACTIONS (2)
  - CARDIAC DISORDER [None]
  - HYPOMAGNESAEMIA [None]
